FAERS Safety Report 24725279 (Version 2)
Quarter: 2024Q4

REPORT INFORMATION
  Report Type: Spontaneous
  Country: JP (occurrence: JP)
  Receive Date: 20241212
  Receipt Date: 20241219
  Transmission Date: 20250115
  Serious: No
  Sender: GILEAD
  Company Number: JP-GILEAD-2024-0696637

PATIENT
  Age: 60 Year
  Sex: Female
  Weight: 80 kg

DRUGS (1)
  1. TRODELVY [Suspect]
     Active Substance: SACITUZUMAB GOVITECAN-HZIY
     Indication: Triple negative breast cancer
     Dosage: UNK
     Route: 065
     Dates: start: 20241210, end: 20241210

REACTIONS (6)
  - Hot flush [Recovered/Resolved]
  - Hypoaesthesia [Recovered/Resolved]
  - Malaise [Unknown]
  - Diarrhoea [Unknown]
  - Nausea [Unknown]
  - Neutrophil count decreased [Unknown]

NARRATIVE: CASE EVENT DATE: 20241210
